FAERS Safety Report 13407536 (Version 3)
Quarter: 2017Q2

REPORT INFORMATION
  Report Type: Spontaneous
  Country: US (occurrence: US)
  Receive Date: 20170405
  Receipt Date: 20170504
  Transmission Date: 20170830
  Serious: Yes (Death, Hospitalization, Other)
  Sender: FDA-Public Use
  Company Number: US-BAXTER-2017BAX015191

PATIENT
  Age: 67 Year
  Sex: Female

DRUGS (2)
  1. DIANEAL LOW CALCIUM PERITONEAL DIALYSIS SOLUTION WITH DEXTROSE [Suspect]
     Active Substance: CALCIUM CHLORIDE\DEXTROSE\MAGNESIUM CHLORIDE\SODIUM CHLORIDE\SODIUM LACTATE
     Indication: PERITONEAL DIALYSIS
     Route: 033
     Dates: end: 20170401
  2. DIANEAL LOW CALCIUM PERITONEAL DIALYSIS SOLUTION WITH DEXTROSE [Suspect]
     Active Substance: CALCIUM CHLORIDE\DEXTROSE\MAGNESIUM CHLORIDE\SODIUM CHLORIDE\SODIUM LACTATE
     Indication: PERITONEAL DIALYSIS
     Route: 033
     Dates: end: 20170401

REACTIONS (13)
  - Coronary artery occlusion [Unknown]
  - Fall [Unknown]
  - Blood pressure decreased [Unknown]
  - Rectal prolapse [Unknown]
  - Asthenia [Unknown]
  - Malnutrition [Unknown]
  - Disease complication [Fatal]
  - Clostridium difficile infection [Unknown]
  - Gastrointestinal disorder [Unknown]
  - Myocardial infarction [Fatal]
  - Vascular stent occlusion [Unknown]
  - Vascular stent thrombosis [Unknown]
  - Sepsis [Unknown]

NARRATIVE: CASE EVENT DATE: 201702
